FAERS Safety Report 25094529 (Version 1)
Quarter: 2025Q1

REPORT INFORMATION
  Report Type: Spontaneous
  Country: CA (occurrence: CA)
  Receive Date: 20250319
  Receipt Date: 20250319
  Transmission Date: 20250409
  Serious: Yes (Hospitalization, Disabling)
  Sender: CHEPLAPHARM
  Company Number: CA-CHEPLA-2025003481

PATIENT
  Age: 42 Year
  Sex: Female
  Weight: 93 kg

DRUGS (7)
  1. CAPECITABINE [Suspect]
     Active Substance: CAPECITABINE
     Indication: Breast cancer metastatic
  2. APIXABAN [Concomitant]
     Active Substance: APIXABAN
  3. Calcium; Vitamin D [Concomitant]
  4. LORAZEPAM [Concomitant]
     Active Substance: LORAZEPAM
  5. MIRTAZAPINE [Concomitant]
     Active Substance: MIRTAZAPINE
  6. PROCHLORPERAZINE [Concomitant]
     Active Substance: PROCHLORPERAZINE
  7. ZOLEDRONIC ACID [Concomitant]
     Active Substance: ZOLEDRONIC ACID

REACTIONS (1)
  - Myopericarditis [Recovered/Resolved with Sequelae]
